FAERS Safety Report 6627927-4 (Version None)
Quarter: 2010Q1

REPORT INFORMATION
  Report Type: 
  Country: None (occurrence: None)
  Receive Date: 20100311
  Receipt Date: 20090327
  Transmission Date: 20100710
  Serious: No
  Sender: FDA-Public Use
  Company Number: A0775865A

PATIENT
  Age: 50 Year
  Sex: Female

DRUGS (2)
  1. NICORETTE [Suspect]
     Route: 048
     Dates: start: 20090323
  2. BUPROPION HCL [Concomitant]

REACTIONS (1)
  - GLOSSITIS [None]
